FAERS Safety Report 21545144 (Version 25)
Quarter: 2023Q4

REPORT INFORMATION
  Report Type: Report from Study
  Country: NO (occurrence: None)
  Receive Date: 20221103
  Receipt Date: 20231123
  Transmission Date: 20240109
  Serious: Yes (Hospitalization)
  Sender: FDA-Public Use
  Company Number: NO-ROCHE-3208792

PATIENT
  Age: 56 Year
  Sex: Male
  Weight: 95.3 kg

DRUGS (22)
  1. COBIMETINIB [Suspect]
     Active Substance: COBIMETINIB
     Indication: Metastatic malignant melanoma
     Dosage: DOSE LAST STUDY DRUG ADMIN PRIOR SAE IS 20 MG ON 26/OCT/2022 AND 02/NOV/2022, 06/NOV/2022 9:45 AM AN
     Route: 048
     Dates: start: 20221026
  2. LANTUS [Concomitant]
     Active Substance: INSULIN GLARGINE
     Indication: Diabetes mellitus
     Route: 058
     Dates: start: 2021, end: 202301
  3. TARGINIQ ER [Concomitant]
     Active Substance: NALOXONE HYDROCHLORIDE\OXYCODONE HYDROCHLORIDE
     Indication: Pain
     Route: 048
     Dates: start: 2019
  4. LYRICA [Concomitant]
     Active Substance: PREGABALIN
     Indication: Pain
     Route: 048
     Dates: start: 2019
  5. ZYRTEC (NORWAY) [Concomitant]
     Indication: Seasonal allergy
     Route: 048
     Dates: start: 2019
  6. TRIATEC (NORWAY) [Concomitant]
     Indication: Hypertension
     Route: 048
     Dates: start: 2021
  7. ACETAMINOPHEN [Concomitant]
     Active Substance: ACETAMINOPHEN
     Indication: Pain
     Route: 048
     Dates: start: 20221109
  8. MOVICOL [Concomitant]
     Active Substance: POLYETHYLENE GLYCOL 3350\POTASSIUM CHLORIDE\SODIUM BICARBONATE\SODIUM CHLORIDE
     Indication: Ammonia increased
     Dosage: 1 BOX
     Route: 048
     Dates: start: 20221125, end: 20231114
  9. TRIATEX [Concomitant]
     Active Substance: TRIAMCINOLONE ACETONIDE
     Indication: Hypertension
     Route: 048
     Dates: start: 2021
  10. GENTAMICIN [Concomitant]
     Active Substance: GENTAMICIN
     Indication: Urinary tract infection
     Route: 042
     Dates: start: 20231104, end: 20231104
  11. GENTAMICIN [Concomitant]
     Active Substance: GENTAMICIN
     Route: 042
     Dates: start: 20231105, end: 20231105
  12. PENICILLIN G [Concomitant]
     Active Substance: PENICILLIN G
     Indication: Urinary tract infection
     Route: 042
     Dates: start: 20231104, end: 20231106
  13. CLINDAMYCIN [Concomitant]
     Active Substance: CLINDAMYCIN
     Indication: Urinary tract infection
     Route: 042
     Dates: start: 20231106, end: 20231107
  14. PIPERACILLIN SODIUM\TAZOBACTAM SODIUM [Concomitant]
     Active Substance: PIPERACILLIN SODIUM\TAZOBACTAM SODIUM
     Indication: Urinary tract infection
     Route: 042
     Dates: start: 20231107
  15. XIFAXAN [Concomitant]
     Active Substance: RIFAXIMIN
     Route: 048
     Dates: start: 20231104
  16. SODIUM PHOSPHATE, MONOBASIC, ANHYDROUS [Concomitant]
     Active Substance: SODIUM PHOSPHATE, MONOBASIC, ANHYDROUS
     Indication: Hypophosphataemia
     Route: 048
     Dates: start: 20231024
  17. SODIUM PICOSULFATE [Concomitant]
     Active Substance: SODIUM PICOSULFATE
     Indication: Ammonia increased
     Route: 048
     Dates: start: 20231114
  18. EBASTINE [Concomitant]
     Active Substance: EBASTINE
     Indication: Hypersensitivity
     Route: 048
  19. CHOLECALCIFEROL [Concomitant]
     Active Substance: CHOLECALCIFEROL
     Route: 048
     Dates: start: 20191108
  20. NOVORAPID [Concomitant]
     Active Substance: INSULIN ASPART
     Route: 058
     Dates: start: 201905
  21. OXYCODONE HYDROCHLORIDE [Concomitant]
     Active Substance: OXYCODONE HYDROCHLORIDE
     Indication: Abdominal pain
     Route: 048
     Dates: start: 20231114
  22. METOCLOPRAMIDE HYDROCHLORIDE [Concomitant]
     Active Substance: METOCLOPRAMIDE HYDROCHLORIDE
     Indication: Nausea
     Route: 048
     Dates: start: 20231105

REACTIONS (3)
  - Eye pain [Recovered/Resolved]
  - Cognitive disorder [Recovered/Resolved]
  - Dermatitis acneiform [Not Recovered/Not Resolved]

NARRATIVE: CASE EVENT DATE: 20221026
